FAERS Safety Report 24913586 (Version 4)
Quarter: 2025Q4

REPORT INFORMATION
  Report Type: Spontaneous
  Country: US (occurrence: US)
  Receive Date: 20250201
  Receipt Date: 20251204
  Transmission Date: 20260117
  Serious: No
  Sender: MERCK SHARP & DOHME LLC
  Company Number: US-009507513-2501USA002228

PATIENT
  Sex: Female
  Weight: 101.9 kg

DRUGS (23)
  1. WINREVAIR [Suspect]
     Active Substance: SOTATERCEPT-CSRK
  2. WINREVAIR [Suspect]
     Active Substance: SOTATERCEPT-CSRK
  3. WINREVAIR [Suspect]
     Active Substance: SOTATERCEPT-CSRK
  4. WINREVAIR [Suspect]
     Active Substance: SOTATERCEPT-CSRK
  5. TYVASO [Suspect]
     Active Substance: TREPROSTINIL
     Indication: Pulmonary arterial hypertension
     Dosage: DOSE DESCRIPTION : 66 MICROGRAMS (11 BREATHS), QID?CONCENTRATION: 0.6 MILLIGRAM PER MILLILITRE
     Route: 055
  6. TYVASO [Suspect]
     Active Substance: TREPROSTINIL
     Indication: Pulmonary arterial hypertension
     Dosage: DOSE DESCRIPTION : 60 MICROGRAMS (10 BREATHS), QID?DAILY DOSE : 240 MICROGRAM?CONCENTRATION: 0.6 ...
     Route: 055
     Dates: start: 20240530
  7. ESCITALOPRAM OXALATE [Concomitant]
     Active Substance: ESCITALOPRAM OXALATE
  8. MYCOPHENOLATE MOFETIL [Concomitant]
     Active Substance: MYCOPHENOLATE MOFETIL
  9. ALBUTEROL SULFATE [Concomitant]
     Active Substance: ALBUTEROL SULFATE
  10. AZELASTINE HYDROCHLORIDE [Concomitant]
     Active Substance: AZELASTINE HYDROCHLORIDE
  11. VITAMIN D2 [Concomitant]
     Active Substance: ERGOCALCIFEROL
  12. DENTAGEL [SODIUM FLUORIDE] [Concomitant]
  13. LOSARTAN POTASSIUM [Concomitant]
     Active Substance: LOSARTAN POTASSIUM
  14. TADALAFIL [Concomitant]
     Active Substance: TADALAFIL
  15. ELIQUIS [Concomitant]
     Active Substance: APIXABAN
  16. OXYGEN [Concomitant]
     Active Substance: OXYGEN
  17. AMBRISENTAN [Concomitant]
     Active Substance: AMBRISENTAN
  18. DILTIAZEM HYDROCHLORIDE [Concomitant]
     Active Substance: DILTIAZEM HYDROCHLORIDE
  19. MONTELUKAST SODIUM [Concomitant]
     Active Substance: MONTELUKAST SODIUM
  20. CHLORASEPTIC SORE THROAT [Concomitant]
     Active Substance: PHENOL
  21. SODIUM CHLORIDE [Concomitant]
     Active Substance: SODIUM CHLORIDE
  22. ALBUTEROL\IPRATROPIUM [Concomitant]
     Active Substance: ALBUTEROL\IPRATROPIUM
  23. Glucosamine Chondroitin with vitamin D3 extra strength Premium Formula [Concomitant]

REACTIONS (4)
  - Injection site papule [Recovered/Resolved]
  - Injection site irritation [Unknown]
  - Injection site pruritus [Recovered/Resolved]
  - Epistaxis [Unknown]
